FAERS Safety Report 8826498 (Version 1)
Quarter: 2012Q4

REPORT INFORMATION
  Report Type: 
  Country: BR (occurrence: BR)
  Receive Date: 20121005
  Receipt Date: 20121005
  Transmission Date: 20130627
  Serious: Yes (Other)
  Sender: FDA-Public Use
  Company Number: BR-PFIZER INC-2012243596

PATIENT
  Age: 58 Year
  Sex: Female

DRUGS (1)
  1. FRONTAL [Suspect]
     Indication: DEPRESSED MOOD
     Dosage: one tablet (0.5mg) at night
     Route: 048
     Dates: start: 20120915

REACTIONS (6)
  - Affective disorder [Unknown]
  - Depressed mood [Unknown]
  - Sedation [Unknown]
  - Headache [Unknown]
  - Off label use [Unknown]
  - Drug ineffective for unapproved indication [Unknown]
